FAERS Safety Report 24415505 (Version 1)
Quarter: 2024Q4

REPORT INFORMATION
  Report Type: Spontaneous
  Country: US (occurrence: US)
  Receive Date: 20241009
  Receipt Date: 20241009
  Transmission Date: 20250114
  Serious: Yes (Hospitalization, Other)
  Sender: CHEPLAPHARM
  Company Number: US-ROCHE-10000091695

PATIENT
  Sex: Female

DRUGS (2)
  1. CAPECITABINE [Suspect]
     Active Substance: CAPECITABINE
     Indication: Product used for unknown indication
  2. TUKYSA [Suspect]
     Active Substance: TUCATINIB
     Indication: Product used for unknown indication
     Dosage: 1 150MG TABLET AND 2 50MG TABLETS TWICE PER DAY ORALLY
     Route: 048
     Dates: start: 202205

REACTIONS (15)
  - Hepatic cirrhosis [Unknown]
  - Myelosuppression [Unknown]
  - Metastases to central nervous system [Unknown]
  - Myelodysplastic syndrome with single lineage dysplasia [Unknown]
  - Deep vein thrombosis [Unknown]
  - Portal hypertension [Unknown]
  - Enteritis [Unknown]
  - Drug intolerance [Unknown]
  - Pyrexia [Unknown]
  - Musculoskeletal stiffness [Unknown]
  - Oedema peripheral [Unknown]
  - Anaemia [Unknown]
  - Urinary tract infection [Unknown]
  - Haemorrhage [Unknown]
  - Off label use [Unknown]

NARRATIVE: CASE EVENT DATE: 20220501
